FAERS Safety Report 23766405 (Version 1)
Quarter: 2024Q2

REPORT INFORMATION
  Report Type: Other
  Country: GB (occurrence: GB)
  Receive Date: 20240422
  Receipt Date: 20240422
  Transmission Date: 20240716
  Serious: Yes (Life-Threatening, Hospitalization, Disabling, Other)
  Sender: FDA-Public Use
  Company Number: GB-BIOCON BIOLOGICS LIMITED-BBL2024002404

PATIENT

DRUGS (1)
  1. ADALIMUMAB [Suspect]
     Active Substance: ADALIMUMAB\ISOPROPYL ALCOHOL
     Indication: Psoriasis
     Dosage: 40 MG (EVERY FORTNIGHT)
     Route: 065
     Dates: start: 20231121, end: 20240315

REACTIONS (1)
  - Dilated cardiomyopathy [Not Recovered/Not Resolved]
